FAERS Safety Report 8420030-2 (Version None)
Quarter: 2012Q2

REPORT INFORMATION
  Report Type: 
  Country: None (occurrence: None)
  Receive Date: 20120607
  Receipt Date: 20120601
  Transmission Date: 20120825
  Serious: Yes (Other)
  Sender: FDA-Public Use
  Company Number: CA-B.I. PHARMACEUTICALS,INC./RIDGEFIELD-2012-CN-01152CN

PATIENT
  Sex: Female

DRUGS (2)
  1. PRADAXA [Suspect]
     Indication: ATRIAL FIBRILLATION
  2. BETA BLOCKER [Concomitant]
     Indication: ATRIAL FIBRILLATION

REACTIONS (3)
  - RENAL IMPAIRMENT [None]
  - CEREBROVASCULAR ACCIDENT [None]
  - HEART RATE DECREASED [None]
